FAERS Safety Report 8024871-5 (Version None)
Quarter: 2012Q1

REPORT INFORMATION
  Report Type: 
  Country: None (occurrence: None)
  Receive Date: 20120105
  Receipt Date: 20120103
  Transmission Date: 20120608
  Serious: Yes (Other)
  Sender: FDA-Public Use
  Company Number: IL-JNJFOC-20120100427

PATIENT
  Age: 47 Year
  Sex: Female

DRUGS (2)
  1. REMICADE [Suspect]
     Indication: COLITIS ULCERATIVE
     Dosage: 4TH INFUSION AFTER 4 WEEKS
     Route: 042
  2. REMICADE [Suspect]
     Dosage: THIRD INFUSION
     Route: 042

REACTIONS (3)
  - LIP SWELLING [None]
  - COLITIS ULCERATIVE [None]
  - FEELING ABNORMAL [None]
